FAERS Safety Report 15592760 (Version 6)
Quarter: 2019Q1

REPORT INFORMATION
  Report Type: Spontaneous
  Country: US (occurrence: US)
  Receive Date: 20181106
  Receipt Date: 20190315
  Transmission Date: 20190417
  Serious: Yes (Life-Threatening, Hospitalization, Other)
  Sender: FDA-Public Use
  Company Number: US-PFIZER INC-2018445362

PATIENT
  Age: 68 Year
  Sex: Female

DRUGS (3)
  1. SOMAVERT [Suspect]
     Active Substance: PEGVISOMANT
     Dosage: 15 MG, SATURDAY AND SUNDAY
     Route: 058
     Dates: start: 20161201, end: 20181115
  2. SOMAVERT [Suspect]
     Active Substance: PEGVISOMANT
     Indication: ACROMEGALY
     Dosage: 20MG MONDAY - FRIDAY
     Route: 058
     Dates: start: 20161201, end: 20181115
  3. SOMAVERT [Suspect]
     Active Substance: PEGVISOMANT
     Dosage: 20 MG, DAILY
     Route: 058
     Dates: start: 20181116

REACTIONS (14)
  - Pancreatitis [Unknown]
  - Musculoskeletal disorder [Unknown]
  - Cholecystitis [Unknown]
  - Joint swelling [Unknown]
  - Musculoskeletal stiffness [Unknown]
  - Product dose omission [Unknown]
  - Arthralgia [Unknown]
  - Osteoporosis [Unknown]
  - Bone density increased [Unknown]
  - Nodule [Unknown]
  - Fatigue [Unknown]
  - Insulin-like growth factor increased [Not Recovered/Not Resolved]
  - Hypoaesthesia [Unknown]
  - Insomnia [Unknown]
